FAERS Safety Report 5513080-7 (Version None)
Quarter: 2007Q4

REPORT INFORMATION
  Report Type: 
  Country: None (occurrence: None)
  Receive Date: 20071112
  Receipt Date: 20071023
  Transmission Date: 20080405
  Serious: No
  Sender: FDA-Public Use
  Company Number: US-ABBOTT-07P-163-0422166-00

PATIENT
  Age: 92 Year
  Sex: Female

DRUGS (1)
  1. TRICOR [Suspect]
     Indication: DRUG USE FOR UNKNOWN INDICATION

REACTIONS (2)
  - GASTROOESOPHAGEAL REFLUX DISEASE [None]
  - NAUSEA [None]
